FAERS Safety Report 25407502 (Version 1)
Quarter: 2025Q2

REPORT INFORMATION
  Report Type: Spontaneous
  Country: US (occurrence: None)
  Receive Date: 20250605
  Receipt Date: 20250605
  Transmission Date: 20250716
  Serious: No
  Sender: FDA-CTU
  Company Number: None

PATIENT
  Age: 54 Year
  Sex: Female
  Weight: 67.4 kg

DRUGS (2)
  1. CIPROFLOXACIN [Suspect]
     Active Substance: CIPROFLOXACIN
     Indication: Cholecystitis acute
     Dosage: FREQUENCY : TWICE A DAY;?
     Route: 048
  2. FLAGYL [Suspect]
     Active Substance: METRONIDAZOLE\METRONIDAZOLE HYDROCHLORIDE
     Dosage: FREQUENCY : 3 TIMES A DAY;?

REACTIONS (3)
  - Rash erythematous [None]
  - Rash pruritic [None]
  - Adverse drug reaction [None]

NARRATIVE: CASE EVENT DATE: 20250416
